FAERS Safety Report 9988785 (Version 1)
Quarter: 2014Q1

REPORT INFORMATION
  Report Type: Report from Study
  Country: CZ (occurrence: CZ)
  Receive Date: 20140310
  Receipt Date: 20140310
  Transmission Date: 20141002
  Serious: Yes (Hospitalization)
  Sender: FDA-Public Use
  Company Number: CZ-JNJFOC-20140302675

PATIENT
  Age: 79 Year
  Sex: Male
  Weight: 80 kg

DRUGS (11)
  1. XARELTO [Suspect]
     Indication: ATRIAL FIBRILLATION
     Route: 048
     Dates: start: 20130531, end: 20140129
  2. XARELTO [Suspect]
     Indication: CEREBROVASCULAR ACCIDENT PROPHYLAXIS
     Route: 048
     Dates: start: 20130531, end: 20140129
  3. TORVACARD [Concomitant]
     Route: 065
     Dates: start: 2012
  4. VESICARE [Concomitant]
     Route: 065
     Dates: start: 2012
  5. CLOPIDOGREL [Concomitant]
     Route: 065
     Dates: start: 201401
  6. PROPANORM [Concomitant]
     Route: 065
     Dates: start: 2012
  7. CARDILOPIN [Concomitant]
     Route: 065
     Dates: start: 2012
  8. CARDILAN [Concomitant]
     Route: 065
     Dates: start: 2012, end: 20130531
  9. ANOPYRIN [Concomitant]
     Route: 065
     Dates: start: 201401
  10. MICARDIS PLUS [Concomitant]
     Dosage: 80/12.5 MG
     Route: 065
     Dates: start: 201212
  11. OMNIC TOCAS [Concomitant]
     Route: 065
     Dates: start: 2012

REACTIONS (1)
  - Acute myocardial infarction [Recovered/Resolved]
